FAERS Safety Report 7125654-0 (Version None)
Quarter: 2010Q4

REPORT INFORMATION
  Report Type: 
  Country: None (occurrence: None)
  Receive Date: 20101129
  Receipt Date: 20101117
  Transmission Date: 20110411
  Serious: Yes (Hospitalization, Congenital Anomaly)
  Sender: FDA-Public Use
  Company Number: A0685059A

PATIENT
  Sex: Male
  Weight: 2 kg

DRUGS (15)
  1. PAXIL CR [Suspect]
     Indication: DEPRESSION
     Dosage: 25MG PER DAY
     Dates: start: 20030414, end: 20050301
  2. ALBUTEROL [Concomitant]
     Indication: RESPIRATORY DISORDER
  3. PRENATAL VITAMINS [Concomitant]
  4. SINGULAIR [Concomitant]
  5. ADVAIR DISKUS 100/50 [Concomitant]
     Dosage: 1PUFF TWICE PER DAY
     Dates: start: 20050708
  6. INSULIN [Concomitant]
  7. LISINOPRIL [Concomitant]
     Dates: end: 20050211
  8. NEXIUM [Concomitant]
     Dates: end: 20050211
  9. IMITREX [Concomitant]
     Dates: end: 20050211
  10. AUGMENTIN [Concomitant]
     Dates: end: 20050211
  11. LIPITOR [Concomitant]
     Dates: end: 20050211
  12. FLEXERIL [Concomitant]
  13. SUPRAX [Concomitant]
  14. ROBITUSSIN [Concomitant]
  15. PREDNISONE [Concomitant]

REACTIONS (8)
  - ASPLENIA [None]
  - ATRIAL SEPTAL DEFECT [None]
  - BRONCHOPULMONARY DYSPLASIA [None]
  - CONGENITAL TRACHEOMALACIA [None]
  - DEXTROCARDIA [None]
  - DRUG EXPOSURE DURING PREGNANCY [None]
  - HETEROTAXIA [None]
  - LARYNGOMALACIA [None]
